FAERS Safety Report 18601666 (Version 1)
Quarter: 2020Q4

REPORT INFORMATION
  Report Type: Spontaneous
  Country: US (occurrence: US)
  Receive Date: 20201210
  Receipt Date: 20201210
  Transmission Date: 20210114
  Serious: Yes (Other)
  Sender: FDA-Public Use
  Company Number: US-SA-2020SA349309

PATIENT

DRUGS (2)
  1. FLOMAX [Suspect]
     Active Substance: TAMSULOSIN HYDROCHLORIDE
     Indication: BENIGN PROSTATIC HYPERPLASIA
     Dosage: 0.4 MG, QD
     Dates: start: 20180601
  2. FLOMAX [Suspect]
     Active Substance: TAMSULOSIN HYDROCHLORIDE
     Dosage: 0.4 UNK
     Dates: start: 20201119

REACTIONS (7)
  - Inner ear disorder [Recovered/Resolved]
  - Deafness [Recovered/Resolved]
  - Tinnitus [Unknown]
  - Dizziness [Unknown]
  - Meniere^s disease [Recovered/Resolved]
  - Condition aggravated [Recovered/Resolved]
  - Ear discomfort [Recovered/Resolved]
